FAERS Safety Report 5331761-5 (Version None)
Quarter: 2007Q2

REPORT INFORMATION
  Report Type: 
  Country: None (occurrence: None)
  Receive Date: 20070517
  Receipt Date: 20070510
  Transmission Date: 20071010
  Serious: Yes (Hospitalization)
  Sender: FDA-Public Use
  Company Number: 163-20785-07041459

PATIENT
  Age: 50 Year
  Sex: Female
  Weight: 96.7 kg

DRUGS (1)
  1. THALOMID [Suspect]
     Indication: OVARIAN EPITHELIAL CANCER
     Dosage: 200MG, ESCALATION BY 100MG Q WEEK, MAX 400MG/DAY, QHS ON DAYS 1-7 OF TREATMENT, ORAL
     Route: 048
     Dates: start: 20070312, end: 20070422

REACTIONS (4)
  - DEHYDRATION [None]
  - ILEUS [None]
  - OVARIAN CANCER RECURRENT [None]
  - SMALL INTESTINAL OBSTRUCTION [None]
